FAERS Safety Report 4756320-4 (Version None)
Quarter: 2005Q3

REPORT INFORMATION
  Report Type: 
  Country: None (occurrence: None)
  Receive Date: 20050830
  Receipt Date: 20050531
  Transmission Date: 20060218
  Serious: No
  Sender: FDA-Public Use
  Company Number: US-GLAXOSMITHKLINE-A0560568A

PATIENT
  Age: 52 Year
  Sex: Male

DRUGS (6)
  1. WELLBUTRIN XL [Suspect]
     Indication: DEPRESSION
     Dosage: 150MG PER DAY
     Route: 048
     Dates: start: 20050527
  2. PAXIL [Concomitant]
  3. ALTACE [Concomitant]
  4. LEVOTHROID [Concomitant]
  5. PREVACID [Concomitant]
  6. LESCOL [Concomitant]

REACTIONS (2)
  - DYSKINESIA [None]
  - HEART RATE INCREASED [None]
